FAERS Safety Report 6009956-7 (Version None)
Quarter: 2008Q4

REPORT INFORMATION
  Report Type: 
  Country: None (occurrence: None)
  Receive Date: 20081216
  Receipt Date: 20081202
  Transmission Date: 20090506
  Serious: Yes (Other)
  Sender: FDA-Public Use
  Company Number: CH-1167843

PATIENT
  Sex: Female

DRUGS (1)
  1. TOBREX [Suspect]
     Dosage: OPHTHALMIC
     Route: 047

REACTIONS (4)
  - CONVULSION [None]
  - EPILEPSY [None]
  - MUSCLE SPASMS [None]
  - PETIT MAL EPILEPSY [None]
